FAERS Safety Report 7654184-2 (Version None)
Quarter: 2011Q3

REPORT INFORMATION
  Report Type: 
  Country: None (occurrence: None)
  Receive Date: 20110803
  Receipt Date: 20110802
  Transmission Date: 20111222
  Serious: Yes (Death, Other)
  Sender: FDA-Public Use
  Company Number: PHEH2007US08749

PATIENT
  Sex: Female

DRUGS (17)
  1. OXYCODONE HCL [Concomitant]
  2. REGLAN [Concomitant]
  3. RADIOTHERAPY [Concomitant]
     Indication: PELVIC FRACTURE
     Dates: start: 20030501
  4. AROMASIN [Concomitant]
  5. AREDIA [Suspect]
     Dates: start: 20050101
  6. OXYCONTIN [Concomitant]
     Dosage: 30 MG, BID
  7. ZOMETA [Suspect]
     Indication: METASTASES TO BONE
     Dates: start: 20030218, end: 20050127
  8. TAMOXIFEN CITRATE [Concomitant]
     Dates: start: 19990801
  9. LEXAPRO [Concomitant]
  10. ACETAMINOPHEN [Concomitant]
  11. CELEBREX [Concomitant]
     Dosage: 200 MG, QD
  12. DIGOXIN [Concomitant]
     Dosage: 0.25 MG, QD
  13. ROXICET [Concomitant]
     Dates: start: 20030901
  14. FEMARA [Concomitant]
  15. PREVACID [Concomitant]
     Dosage: 30 MG, QD
  16. FLONASE [Concomitant]
  17. FASLODEX [Concomitant]

REACTIONS (26)
  - ATRIAL FLUTTER [None]
  - BONE LESION [None]
  - PAIN IN JAW [None]
  - DENTAL CARIES [None]
  - METASTASES TO PLEURA [None]
  - INFECTION [None]
  - LUNG INFILTRATION [None]
  - PLEURAL EFFUSION [None]
  - IMPAIRED HEALING [None]
  - ANXIETY [None]
  - DECREASED INTEREST [None]
  - PAIN [None]
  - OSTEONECROSIS OF JAW [None]
  - GENERAL PHYSICAL HEALTH DETERIORATION [None]
  - DEATH [None]
  - NEOPLASM MALIGNANT [None]
  - OSTEOSCLEROSIS [None]
  - DECREASED APPETITE [None]
  - BONE DISORDER [None]
  - METASTASES TO BONE [None]
  - SPINAL OSTEOARTHRITIS [None]
  - EMOTIONAL DISTRESS [None]
  - NEOPLASM PROGRESSION [None]
  - OSTEOLYSIS [None]
  - CHOLELITHIASIS [None]
  - WEIGHT DECREASED [None]
